FAERS Safety Report 8840170 (Version 1)
Quarter: 2012Q4

REPORT INFORMATION
  Report Type: 
  Country: HU (occurrence: HU)
  Receive Date: 20121015
  Receipt Date: 20121015
  Transmission Date: 20130627
  Serious: Yes (Other)
  Sender: FDA-Public Use
  Company Number: HU-AMGEN-HUNSP2012060353

PATIENT
  Age: 69 Year
  Sex: Female

DRUGS (2)
  1. VECTIBIX [Suspect]
     Indication: COLON CANCER METASTATIC
     Dosage: 6 mg/kg, q2wk
     Route: 042
     Dates: start: 20120523
  2. VECTIBIX [Suspect]
     Indication: DISEASE PROGRESSION

REACTIONS (1)
  - Hypomagnesaemia [Recovered/Resolved]
